FAERS Safety Report 9321712 (Version 1)
Quarter: 2013Q2

REPORT INFORMATION
  Report Type: Spontaneous
  Country: GB (occurrence: GB)
  Receive Date: 20130531
  Receipt Date: 20130531
  Transmission Date: 20140414
  Serious: Yes (Hospitalization, Other)
  Sender: FDA-Public Use
  Company Number: GB-ABBOTT-13A-167-1055200-00

PATIENT
  Age: 23 Year
  Sex: Male

DRUGS (9)
  1. SODIUM VALPROATE [Suspect]
     Indication: SCHIZOAFFECTIVE DISORDER
  2. SODIUM VALPROATE [Suspect]
  3. OLANZAPINE [Suspect]
     Indication: SCHIZOAFFECTIVE DISORDER
  4. ZUCLOPENTHIXOL [Suspect]
     Indication: SCHIZOAFFECTIVE DISORDER
  5. HALOPERIDOL [Suspect]
     Indication: SCHIZOAFFECTIVE DISORDER
  6. QUETIAPINE [Suspect]
  7. AMISULPRIDE [Concomitant]
     Indication: SCHIZOAFFECTIVE DISORDER
  8. LITHIUM [Concomitant]
     Indication: SCHIZOAFFECTIVE DISORDER
  9. ARIPIPRAZOLE [Concomitant]
     Indication: PRODUCT USED FOR UNKNOWN INDICATION

REACTIONS (9)
  - Extrapyramidal disorder [Unknown]
  - Tachycardia [Unknown]
  - Oropharyngeal pain [Unknown]
  - Periorbital cellulitis [Unknown]
  - Agranulocytosis [Recovered/Resolved]
  - Agranulocytosis [Recovered/Resolved]
  - Agranulocytosis [Recovered/Resolved]
  - Drug ineffective [Unknown]
  - Weight increased [Unknown]
